FAERS Safety Report 15689248 (Version 1)
Quarter: 2018Q4

REPORT INFORMATION
  Report Type: Report from Study
  Country: CA (occurrence: CA)
  Receive Date: 20181205
  Receipt Date: 20181205
  Transmission Date: 20190205
  Serious: Yes (Other)
  Sender: FDA-Public Use
  Company Number: PHHY2010CA08829

PATIENT
  Sex: Female

DRUGS (3)
  1. OXAZEPAM. [Concomitant]
     Active Substance: OXAZEPAM
     Indication: PRODUCT USED FOR UNKNOWN INDICATION
     Dosage: 7.5 MG, UNK
     Route: 065
  2. SANDOSTATIN LAR DEPOT [Suspect]
     Active Substance: OCTREOTIDE ACETATE
     Indication: ACRAL OVERGROWTH
     Dosage: 10 MG, QMO
     Route: 030
     Dates: start: 20040127
  3. DULOXETINE HCL [Concomitant]
     Active Substance: DULOXETINE HYDROCHLORIDE
     Indication: PRODUCT USED FOR UNKNOWN INDICATION
     Dosage: 30 MG, QD
     Route: 065
     Dates: start: 20181116

REACTIONS (12)
  - Major depression [Unknown]
  - Blood pressure diastolic decreased [Unknown]
  - Alopecia [Unknown]
  - Constipation [Unknown]
  - Heart rate decreased [Unknown]
  - Dysacusis [Unknown]
  - Body temperature decreased [Unknown]
  - Dehydration [Unknown]
  - Headache [Unknown]
  - Depression [Unknown]
  - Injection site pruritus [Unknown]
  - Injection site pain [Recovering/Resolving]

NARRATIVE: CASE EVENT DATE: 2018
